FAERS Safety Report 7378386-8 (Version None)
Quarter: 2011Q1

REPORT INFORMATION
  Report Type: 
  Country: None (occurrence: None)
  Receive Date: 20110317
  Receipt Date: 20110308
  Transmission Date: 20110831
  Serious: Yes (Other)
  Sender: FDA-Public Use
  Company Number: 021423

PATIENT
  Sex: Female
  Weight: 99.8 kg

DRUGS (6)
  1. COQ10 [Concomitant]
  2. LEXAPRO [Concomitant]
  3. OLIVE LEAVES EXTRACT [Concomitant]
  4. MULTIPLE VITAMINS [Concomitant]
  5. CIMZIA [Suspect]
     Indication: CROHN'S DISEASE
     Dosage: 2 SYRINGES, SUBCUTANEOUS
     Route: 058
     Dates: start: 20090915, end: 20101126
  6. ASACOL [Concomitant]

REACTIONS (5)
  - AMENORRHOEA [None]
  - RENAL CYST [None]
  - THYROID CYST [None]
  - THYROID NEOPLASM [None]
  - LYMPHADENOPATHY [None]
